FAERS Safety Report 8534128-1 (Version None)
Quarter: 2012Q3

REPORT INFORMATION
  Report Type: 
  Country: None (occurrence: None)
  Receive Date: 20120724
  Receipt Date: 20120719
  Transmission Date: 20120928
  Serious: Yes (Death)
  Sender: FDA-Public Use
  Company Number: CN-ASTRAZENECA-2012SE51279

PATIENT
  Sex: Male
  Weight: 55.8 kg

DRUGS (2)
  1. QUETIAPINE [Suspect]
     Route: 048
     Dates: start: 20100824
  2. QUETIAPINE [Suspect]
     Indication: SCHIZOPHRENIA
     Route: 048
     Dates: start: 20100817, end: 20100823

REACTIONS (1)
  - SUDDEN CARDIAC DEATH [None]
